FAERS Safety Report 21007546 (Version 1)
Quarter: 2022Q2

REPORT INFORMATION
  Report Type: Report from Study
  Country: CA (occurrence: CA)
  Receive Date: 20220626
  Receipt Date: 20220626
  Transmission Date: 20220720
  Serious: Yes (Hospitalization, Other)
  Sender: FDA-Public Use
  Company Number: CA-ABBVIE-22K-028-4350061-00

PATIENT
  Age: 56 Year
  Sex: Female

DRUGS (2)
  1. HUMIRA [Suspect]
     Active Substance: ADALIMUMAB
     Indication: Crohn^s disease
     Route: 058
     Dates: start: 20110407
  2. HUMIRA [Suspect]
     Active Substance: ADALIMUMAB
     Route: 058

REACTIONS (12)
  - Pulmonary congestion [Unknown]
  - Myocardial infarction [Unknown]
  - Irritable bowel syndrome [Unknown]
  - Skin striae [Unknown]
  - Illness [Unknown]
  - Tooth extraction [Unknown]
  - COVID-19 [Unknown]
  - Injection site pain [Unknown]
  - Hypertension [Unknown]
  - Drug ineffective [Unknown]
  - Unevaluable event [Unknown]
  - Drug tolerance increased [Unknown]

NARRATIVE: CASE EVENT DATE: 20220101
